FAERS Safety Report 4996991-0 (Version None)
Quarter: 2006Q2

REPORT INFORMATION
  Report Type: 
  Country: None (occurrence: None)
  Receive Date: 20060509
  Receipt Date: 20060504
  Transmission Date: 20061013
  Serious: Yes (Life-Threatening, Hospitalization)
  Sender: FDA-Public Use
  Company Number: 2006SE02564

PATIENT
  Age: 17694 Day
  Sex: Female

DRUGS (2)
  1. BETALOC ZOK [Suspect]
     Indication: SUPRAVENTRICULAR TACHYCARDIA
     Route: 048
     Dates: start: 20060331, end: 20060413
  2. SORTIS [Concomitant]
     Route: 048

REACTIONS (6)
  - ABDOMINAL PAIN [None]
  - CIRCULATORY COLLAPSE [None]
  - DYSPNOEA [None]
  - URTICARIA [None]
  - URTICARIA GENERALISED [None]
  - VOMITING [None]
